FAERS Safety Report 8602505 (Version 2)
Quarter: 2012Q4

REPORT INFORMATION
  Report Type: 
  Country: US (occurrence: US)
  Receive Date: 20120607
  Receipt Date: 20120907
  Transmission Date: 20130627
  Serious: Yes (Other)
  Sender: FDA-Public Use
  Company Number: US-PFIZER INC-2012134188

PATIENT
  Age: 49 Year
  Sex: Female
  Weight: 68 kg

DRUGS (5)
  1. LYRICA [Suspect]
     Indication: EPILEPSY
     Dosage: one 100mg capsule in the morning and two capsules of 100mg at night
     Route: 048
     Dates: start: 2007
  2. LACOSAMIDE [Concomitant]
     Dosage: UNK
  3. TRAZODONE [Concomitant]
     Dosage: UNK
  4. CELEXA [Concomitant]
     Indication: DEPRESSION
     Dosage: UNK
  5. ABILIFY [Concomitant]
     Indication: DEPRESSION
     Dosage: UNK

REACTIONS (3)
  - Memory impairment [Not Recovered/Not Resolved]
  - Dementia [Not Recovered/Not Resolved]
  - Weight increased [Unknown]
